FAERS Safety Report 4677037-0 (Version None)
Quarter: 2005Q2

REPORT INFORMATION
  Report Type: 
  Country: None (occurrence: None)
  Receive Date: 20050525
  Receipt Date: 20050126
  Transmission Date: 20051028
  Serious: No
  Sender: FDA-Public Use
  Company Number: SU-2005-003057

PATIENT

DRUGS (2)
  1. BENICAR [Suspect]
     Indication: HYPERTENSION
     Dosage: MG QD PO
     Route: 048
     Dates: start: 20040101, end: 20050101
  2. SEVERAL UNSPECIFIED MEDICATIONS [Concomitant]

REACTIONS (1)
  - OEDEMA [None]
